FAERS Safety Report 21674130 (Version 4)
Quarter: 2023Q1

REPORT INFORMATION
  Report Type: Spontaneous
  Country: US (occurrence: US)
  Receive Date: 20221202
  Receipt Date: 20230113
  Transmission Date: 20230418
  Serious: Yes (Hospitalization, Other)
  Sender: FDA-Public Use
  Company Number: US-PFIZER INC-PV202200073228

PATIENT
  Age: 57 Year
  Sex: Female
  Weight: 97.052 kg

DRUGS (12)
  1. EXEMESTANE [Suspect]
     Active Substance: EXEMESTANE
     Dosage: 25 MG, 1X/DAY
  2. PREGABALIN [Suspect]
     Active Substance: PREGABALIN
     Indication: Neuropathy peripheral
     Dosage: 25 MILLIGRAM, QID
     Route: 065
  3. PREGABALIN [Suspect]
     Active Substance: PREGABALIN
     Dosage: 125 MG
     Route: 065
  4. PREGABALIN [Suspect]
     Active Substance: PREGABALIN
     Dosage: 400 MILLIGRAM, BID (400 MG TWICE A DAY IN THE MORNING AND AT NIGHT)
     Route: 065
  5. LISINOPRIL [Suspect]
     Active Substance: LISINOPRIL
     Dosage: 41 MG, 1X/DAY
  6. OMEPRAZOLE [Concomitant]
     Active Substance: OMEPRAZOLE
     Dosage: 40 MG, 1X/DAY
  7. AMLODIPINE [Concomitant]
     Active Substance: AMLODIPINE BESYLATE
     Dosage: 5 MG, 1X/DAY
  8. MONTELUKAST [Concomitant]
     Active Substance: MONTELUKAST SODIUM
     Dosage: 10 MG
  9. ACETAMINOPHEN\HYDROCODONE [Concomitant]
     Active Substance: ACETAMINOPHEN\HYDROCODONE
     Dosage: 5 MG
  10. CYCLOBENZAPRINE [Concomitant]
     Active Substance: CYCLOBENZAPRINE
     Dosage: 10 MG
  11. IBRANCE [Concomitant]
     Active Substance: PALBOCICLIB
     Dosage: 125 MG
  12. POTASSIUM CHLORIDE [Concomitant]
     Active Substance: POTASSIUM CHLORIDE
     Dosage: UNK

REACTIONS (6)
  - Blood potassium decreased [Unknown]
  - White blood cell count decreased [Unknown]
  - Depression [Not Recovered/Not Resolved]
  - Anxiety [Not Recovered/Not Resolved]
  - Lymphoedema [Unknown]
  - Fatigue [Not Recovered/Not Resolved]

NARRATIVE: CASE EVENT DATE: 20221001
